FAERS Safety Report 5950541-0 (Version None)
Quarter: 2008Q4

REPORT INFORMATION
  Report Type: 
  Country: None (occurrence: None)
  Receive Date: 20081022
  Receipt Date: 20080729
  Transmission Date: 20090506
  Serious: No
  Sender: FDA-Public Use
  Company Number: SPV1-2008-01606

PATIENT
  Age: 5 Year
  Sex: Male
  Weight: 20 kg

DRUGS (1)
  1. VYVANSE [Suspect]
     Indication: ATTENTION DEFICIT/HYPERACTIVITY DISORDER
     Dosage: HALF 30 MG CAPSULE, 1X/DAY:QD, ORAL
     Route: 048
     Dates: start: 20080301, end: 20080301

REACTIONS (3)
  - DRUG PRESCRIBING ERROR [None]
  - OFF LABEL USE [None]
  - TREMOR [None]
